FAERS Safety Report 4506498-2 (Version None)
Quarter: 2004Q4

REPORT INFORMATION
  Report Type: 
  Country: None (occurrence: None)
  Receive Date: 20041122
  Receipt Date: 20041111
  Transmission Date: 20050328
  Serious: Yes (Other)
  Sender: FDA-Public Use
  Company Number: JP-ABBOTT-04P-087-0280548-00

PATIENT
  Age: 79 Year
  Sex: Male

DRUGS (2)
  1. KLARICID [Suspect]
     Indication: DRUG USE FOR UNKNOWN INDICATION
     Route: 048
  2. L-CARBOCYSTEINE [Suspect]
     Indication: DRUG USE FOR UNKNOWN INDICATION
     Route: 048

REACTIONS (5)
  - BLOOD IMMUNOGLOBULIN G DECREASED [None]
  - EOSINOPHIL COUNT INCREASED [None]
  - LYMPHOCYTE COUNT DECREASED [None]
  - MUCOUS MEMBRANE DISORDER [None]
  - RASH [None]
